FAERS Safety Report 9354804 (Version 2)
Quarter: 2013Q3

REPORT INFORMATION
  Report Type: Spontaneous
  Country: US (occurrence: US)
  Receive Date: 20130619
  Receipt Date: 20130714
  Transmission Date: 20140515
  Serious: Yes (Hospitalization)
  Sender: FDA-Public Use
  Company Number: US-009507513-1306USA005502

PATIENT
  Age: 59 Year
  Sex: Female

DRUGS (3)
  1. VICTRELIS [Suspect]
     Indication: CHRONIC HEPATITIS C
     Dosage: UNK
     Route: 048
     Dates: start: 20130415
  2. PEGASYS [Suspect]
     Indication: CHRONIC HEPATITIS C
     Dosage: PROCLICK, 180 MICROGRAM, 1 IN 1 WEEK
     Route: 058
     Dates: start: 20130311
  3. RIBASPHERE [Suspect]
     Indication: CHRONIC HEPATITIS C
     Dosage: 1000 MG DAILY, DIVIDED DOSE
     Route: 048
     Dates: start: 20130311

REACTIONS (3)
  - Haemoglobin decreased [Unknown]
  - Dyspnoea [Unknown]
  - Inappropriate schedule of drug administration [Unknown]
